FAERS Safety Report 9506015 (Version 1)
Quarter: 2013Q1

REPORT INFORMATION
  Report Type: Spontaneous
  Country: US (occurrence: None)
  Receive Date: 20130305
  Receipt Date: 20130305
  Transmission Date: 20140127
  Serious: No
  Sender: FDA-Public Use
  Company Number: 1000039963

PATIENT
  Age: 67 Year
  Sex: Female

DRUGS (6)
  1. DALIRESP (ROFLUMILAST) (500 MICROGRAM, TABLETS) [Suspect]
     Indication: CHRONIC OBSTRUCTIVE PULMONARY DISEASE
     Route: 048
     Dates: start: 201209
  2. THYROID MEDICATION NOS (THYROID MEDICATION NOS) (THYROID MEDICATION NOS) [Concomitant]
  3. DIURETIC NOS (DIURETIC NOS) (DIURETIC NOS) [Concomitant]
  4. HIGH CHOLESTEROL PRESSURE MEDICATION NOS (HIGH CHOLESTEROL MEDICATON NOS) (HIGH CHOLESTEROL MEDICATION NOS) [Concomitant]
  5. OMEPRAZOLE (OMEPRAZOLE) (OMEPRAZOLE) [Concomitant]
  6. AMBIEN (ZOLPIDEM TARTRATE (ZOLPIDEM TARTRATE) [Concomitant]

REACTIONS (3)
  - Back pain [None]
  - Pain in extremity [None]
  - Muscular weakness [None]
